FAERS Safety Report 5608165-0 (Version None)
Quarter: 2008Q1

REPORT INFORMATION
  Report Type: 
  Country: None (occurrence: None)
  Receive Date: 20080130
  Receipt Date: 20080125
  Transmission Date: 20080703
  Serious: Yes (Other)
  Sender: FDA-Public Use
  Company Number: FR-BRISTOL-MYERS SQUIBB COMPANY-14029631

PATIENT
  Age: 3 Month
  Sex: Male
  Weight: 2 kg

DRUGS (3)
  1. REYATAZ [Suspect]
     Route: 064
  2. TRUVADA [Suspect]
     Route: 064
  3. NORVIR [Suspect]
     Route: 064

REACTIONS (3)
  - ATROPHY [None]
  - BREECH PRESENTATION [None]
  - FOETAL GROWTH RETARDATION [None]
